FAERS Safety Report 9128060 (Version 1)
Quarter: 2013Q1

REPORT INFORMATION
  Report Type: Spontaneous
  Country: US (occurrence: US)
  Receive Date: 20130125
  Receipt Date: 20130125
  Transmission Date: 20140127
  Serious: Yes (Hospitalization)
  Sender: FDA-Public Use
  Company Number: US-TEVA-382252USA

PATIENT
  Age: 67 Year
  Sex: Female

DRUGS (14)
  1. SIMVASTATIN [Suspect]
     Dosage: AT BEDTIME
     Route: 048
  2. DOCETAXEL [Suspect]
     Indication: BREAST CANCER STAGE II
     Route: 042
  3. CYCLOPHOSPHAMIDE [Concomitant]
     Indication: BREAST CANCER STAGE II
     Route: 042
  4. PEGFILGRASTIM [Concomitant]
     Route: 058
  5. DEXAMETHASONE [Concomitant]
     Route: 042
  6. PALONOSETRON [Concomitant]
     Route: 042
  7. APREPITANT [Concomitant]
     Route: 042
  8. PROPAFENONE [Concomitant]
     Indication: ATRIAL FIBRILLATION
     Route: 048
  9. HYDRALAZINE [Concomitant]
     Route: 048
  10. FUROSEMIDE [Concomitant]
     Dosage: 40 MG DAILY
     Route: 048
  11. FOLIC ACID [Concomitant]
     Dosage: 1 MG DAILY
     Route: 048
  12. EZETIMIBE [Concomitant]
     Dosage: 10MG DAILY
     Route: 048
  13. METOPROLOL SUCCINATE [Concomitant]
     Route: 048
  14. ASPIRIN [Concomitant]
     Dosage: 162MG DAILY
     Route: 048

REACTIONS (1)
  - Atrial fibrillation [Recovered/Resolved]
